FAERS Safety Report 23442086 (Version 2)
Quarter: 2024Q2

REPORT INFORMATION
  Report Type: Report from Study
  Country: JP (occurrence: None)
  Receive Date: 20240125
  Receipt Date: 20240513
  Transmission Date: 20240715
  Serious: Yes (Death, Hospitalization)
  Sender: FDA-Public Use
  Company Number: 2024A014559

PATIENT
  Age: 83 Year
  Sex: Male
  Weight: 60 kg

DRUGS (5)
  1. EVUSHELD [Suspect]
     Active Substance: CILGAVIMAB\TIXAGEVIMAB
     Indication: COVID-19 prophylaxis
     Dosage: TO THE LEFT AND RIGHT BUTTOCKS
     Route: 030
     Dates: start: 20231122, end: 20231122
  2. SULFAMETHOXAZOLE\TRIMETHOPRIM [Concomitant]
     Active Substance: SULFAMETHOXAZOLE\TRIMETHOPRIM
     Indication: Pneumonia
     Dosage: DOSE UNKNOWN
     Route: 048
     Dates: start: 20231129
  3. PREDONINE [Concomitant]
     Active Substance: PREDNISOLONE
     Indication: Pneumonia
     Dosage: DOSE UNKNOWN
     Route: 048
     Dates: start: 20231128
  4. JARDIANCE [Concomitant]
     Active Substance: EMPAGLIFLOZIN
     Indication: Diabetes mellitus
     Dosage: DOSE UNKNOWN
     Route: 048
     Dates: start: 20231128
  5. RITUXAN [Concomitant]
     Active Substance: RITUXIMAB
     Dosage: DOSE UNKNOWN
     Route: 065
     Dates: end: 20231128

REACTIONS (2)
  - Pleural effusion [Recovering/Resolving]
  - Diffuse large B-cell lymphoma [Fatal]

NARRATIVE: CASE EVENT DATE: 20231128
